FAERS Safety Report 7952698-9 (Version None)
Quarter: 2011Q4

REPORT INFORMATION
  Report Type: 
  Country: None (occurrence: None)
  Receive Date: 20111201
  Receipt Date: 20111129
  Transmission Date: 20120403
  Serious: Yes (Death, Hospitalization)
  Sender: FDA-Public Use
  Company Number: AR-GENZYME-CLOF-1001877

PATIENT
  Age: 17 Year
  Sex: Male

DRUGS (5)
  1. ACETAMINOPHEN [Concomitant]
     Indication: PREMEDICATION
     Dosage: UNK
     Route: 065
  2. BENADRYL [Concomitant]
     Indication: PREMEDICATION
     Dosage: UNK
     Route: 065
  3. CYCLOPHOSPHAMIDE [Suspect]
     Indication: ACUTE LYMPHOCYTIC LEUKAEMIA RECURRENT
     Dosage: 440 MG/M2, QDX5
     Route: 042
     Dates: start: 20111024, end: 20111028
  4. CLOLAR [Suspect]
     Indication: ACUTE LYMPHOCYTIC LEUKAEMIA RECURRENT
     Dosage: 40 MG/M2, QDX5
     Route: 042
     Dates: start: 20111024, end: 20111028
  5. ETOPOSIDE [Suspect]
     Indication: ACUTE LYMPHOCYTIC LEUKAEMIA RECURRENT
     Dosage: 100 MG/M2, QDX5
     Route: 042
     Dates: start: 20111024, end: 20111028

REACTIONS (5)
  - ERYTHEMA [None]
  - STATUS EPILEPTICUS [None]
  - NEUTROPENIA [None]
  - GRAND MAL CONVULSION [None]
  - SEPSIS [None]
